FAERS Safety Report 10830265 (Version 1)
Quarter: 2015Q1

REPORT INFORMATION
  Report Type: Spontaneous
  Country: US (occurrence: US)
  Receive Date: 20150219
  Receipt Date: 20150219
  Transmission Date: 20150721
  Serious: No
  Sender: FDA-Public Use
  Company Number: US-ASTRAZENECA-2014SE70033

PATIENT
  Age: 50 Year
  Sex: Female
  Weight: 131.5 kg

DRUGS (3)
  1. METFORMIN [Concomitant]
     Active Substance: METFORMIN HYDROCHLORIDE
  2. LANTUS [Concomitant]
     Active Substance: INSULIN GLARGINE
  3. BYETTA [Suspect]
     Active Substance: EXENATIDE
     Route: 058
     Dates: start: 2013, end: 201408

REACTIONS (5)
  - Discomfort [Unknown]
  - Blood glucose fluctuation [Recovering/Resolving]
  - Malaise [Unknown]
  - Vomiting [Unknown]
  - Adverse drug reaction [Unknown]
